FAERS Safety Report 16867387 (Version 1)
Quarter: 2019Q3

REPORT INFORMATION
  Report Type: Spontaneous
  Country: US (occurrence: US)
  Receive Date: 20190930
  Receipt Date: 20190930
  Transmission Date: 20191005
  Serious: No
  Sender: FDA-Public Use
  Company Number: US-INDIVIOR LIMITED-INDV-120400-2019

PATIENT
  Age: 62 Year
  Sex: Female

DRUGS (2)
  1. SUBLOCADE [Suspect]
     Active Substance: BUPRENORPHINE
     Indication: DRUG DEPENDENCE
     Dosage: 100 MILLIGRAM, QMO (3RD INJECTION)
     Route: 058
     Dates: start: 2019, end: 20190628
  2. PROVIGIL [Concomitant]
     Active Substance: MODAFINIL
     Indication: SLEEP APNOEA SYNDROME
     Dosage: 200 MILLIGRAM, BID
     Route: 065
     Dates: start: 201604

REACTIONS (6)
  - Chills [Recovered/Resolved]
  - Hypersensitivity [Recovered/Resolved]
  - Emotional disorder [Not Recovered/Not Resolved]
  - Rhinorrhoea [Recovered/Resolved]
  - Drug withdrawal syndrome [Recovered/Resolved]
  - Formication [Recovered/Resolved]

NARRATIVE: CASE EVENT DATE: 2019
